FAERS Safety Report 8778479 (Version 3)
Quarter: 2012Q4

REPORT INFORMATION
  Report Type: 
  Country: BE (occurrence: BE)
  Receive Date: 20120912
  Receipt Date: 20121016
  Transmission Date: 20130627
  Serious: Yes (Life-Threatening, Hospitalization, Other)
  Sender: FDA-Public Use
  Company Number: BE-GLAXOSMITHKLINE-B0829385A

PATIENT
  Age: 73 Year
  Sex: Male
  Weight: 68.8 kg

DRUGS (12)
  1. VOTRIENT [Suspect]
     Indication: METASTATIC RENAL CELL CARCINOMA
     Dosage: 800MG per day
     Route: 048
     Dates: start: 20120712, end: 20120817
  2. VOTRIENT [Suspect]
     Indication: METASTATIC RENAL CELL CARCINOMA
     Dosage: 600MG per day
     Route: 065
     Dates: start: 20120817, end: 20120827
  3. BEFACT FORTE [Concomitant]
     Indication: VITAMIN B1 DEFICIENCY
     Route: 048
     Dates: start: 20120712, end: 20120827
  4. CALCIUM CARBONATE + CHOLECALCIFEROL [Concomitant]
     Indication: CALCIUM DEFICIENCY
     Route: 048
     Dates: start: 20120712, end: 20120827
  5. FOLIC ACID [Concomitant]
     Indication: FOLATE DEFICIENCY
     Route: 048
     Dates: start: 20120712, end: 20120827
  6. LOSFERRON [Concomitant]
     Indication: IRON DEFICIENCY
     Route: 048
     Dates: start: 20120712, end: 20120827
  7. MOVICOL [Concomitant]
     Indication: CONSTIPATION
     Route: 048
     Dates: start: 20120712, end: 20120827
  8. MOTILIUM [Concomitant]
     Indication: NAUSEA
     Dates: start: 20120712, end: 20120827
  9. BISOPROLOL [Concomitant]
     Indication: HYPERTENSION
     Dosage: 5MG Per day
     Route: 048
     Dates: start: 20120817, end: 20120827
  10. ZOMETA [Concomitant]
     Indication: METASTASES TO BONE
     Dosage: 4MG per day
     Route: 042
     Dates: start: 20120712, end: 20120827
  11. FOLINIC ACID [Concomitant]
  12. VITAMIN B [Concomitant]

REACTIONS (17)
  - Cardiac failure [Recovering/Resolving]
  - Renal failure acute [Recovering/Resolving]
  - Hepatic failure [Recovering/Resolving]
  - Lactic acidosis [Recovering/Resolving]
  - Cardiotoxicity [Unknown]
  - Cardiogenic shock [Unknown]
  - Fatigue [Not Recovered/Not Resolved]
  - Orthopnoea [Recovering/Resolving]
  - Dyspnoea [Not Recovered/Not Resolved]
  - Malaise [Not Recovered/Not Resolved]
  - Ejection fraction decreased [Not Recovered/Not Resolved]
  - Confusional state [Unknown]
  - General physical health deterioration [Recovering/Resolving]
  - Hypoperfusion [Recovering/Resolving]
  - Nausea [Unknown]
  - Decreased appetite [Unknown]
  - Hypertension [Unknown]
